FAERS Safety Report 8233293-3 (Version None)
Quarter: 2012Q1

REPORT INFORMATION
  Report Type: 
  Country: None (occurrence: None)
  Receive Date: 20120326
  Receipt Date: 20120319
  Transmission Date: 20120608
  Serious: Yes (Hospitalization)
  Sender: FDA-Public Use
  Company Number: US-BAYER-2011-114530

PATIENT
  Age: 31 Year
  Sex: Female
  Weight: 98.005 kg

DRUGS (5)
  1. YAZ [Suspect]
     Indication: CONTRACEPTION
     Dosage: UNK
     Dates: start: 20080901, end: 20081201
  2. LEXAPRO [Concomitant]
     Indication: ANXIETY
     Dosage: UNK
  3. MICRONOR [Concomitant]
  4. YAZ [Suspect]
     Indication: PREMENSTRUAL SYNDROME
  5. SYNTHROID [Concomitant]
     Indication: THYROIDECTOMY
     Dosage: UNK

REACTIONS (3)
  - INJURY [None]
  - EMOTIONAL DISTRESS [None]
  - PULMONARY EMBOLISM [None]
